FAERS Safety Report 22307300 (Version 1)
Quarter: 2023Q2

REPORT INFORMATION
  Report Type: Spontaneous
  Country: US (occurrence: US)
  Receive Date: 20230511
  Receipt Date: 20230511
  Transmission Date: 20230721
  Serious: No
  Sender: FDA-Public Use
  Company Number: US-BRISTOL-MYERS SQUIBB COMPANY-2023-066661

PATIENT
  Age: 81 Year
  Sex: Female

DRUGS (1)
  1. ORENCIA [Suspect]
     Active Substance: ABATACEPT
     Indication: Product used for unknown indication
     Dosage: FREQ- INJECT 125MG (1 SYRINGE) ONCE A WEEK
     Route: 058

REACTIONS (2)
  - Injection site haemorrhage [Unknown]
  - Device operational issue [Unknown]

NARRATIVE: CASE EVENT DATE: 20230508
